FAERS Safety Report 17892517 (Version 1)
Quarter: 2020Q2

REPORT INFORMATION
  Report Type: Spontaneous
  Country: ES (occurrence: ES)
  Receive Date: 20200613
  Receipt Date: 20200613
  Transmission Date: 20200714
  Serious: Yes (Death, Hospitalization, Other)
  Sender: FDA-Public Use
  Company Number: ES-AUROBINDO-AUR-APL-2020-028675

PATIENT
  Age: 28 Year
  Sex: Male

DRUGS (6)
  1. OLANZAPINE. [Suspect]
     Active Substance: OLANZAPINE
     Indication: AUTISM SPECTRUM DISORDER
     Dosage: 10 MILLIGRAM, ONCE A DAY
     Route: 048
     Dates: start: 20200513, end: 20200515
  2. HALOPERIDOL. [Interacting]
     Active Substance: HALOPERIDOL
     Indication: PRODUCT USED FOR UNKNOWN INDICATION
     Dosage: 5 MILLIGRAM, 1 TOTAL
     Route: 030
     Dates: start: 20200515, end: 20200515
  3. PAROXETINE. [Interacting]
     Active Substance: PAROXETINE
     Indication: PRODUCT USED FOR UNKNOWN INDICATION
     Dosage: 20 MILLIGRAM, TWO TIMES A DAY (1-1-0 )
     Route: 048
     Dates: start: 20110701, end: 20200515
  4. SEROQUEL [Interacting]
     Active Substance: QUETIAPINE FUMARATE
     Indication: AUTISM SPECTRUM DISORDER
     Dosage: 500 MILLIGRAM, ONCE A DAY (500 MG DIA)
     Route: 048
     Dates: start: 20110701, end: 20200515
  5. ILOPERIDONE. [Suspect]
     Active Substance: ILOPERIDONE
  6. CLOPIXOL [Interacting]
     Active Substance: ZUCLOPENTHIXOL
     Indication: AUTISM SPECTRUM DISORDER
     Dosage: UNK
     Route: 048
     Dates: start: 20100824, end: 20200515

REACTIONS (1)
  - Cardio-respiratory arrest [Fatal]

NARRATIVE: CASE EVENT DATE: 20200515
